FAERS Safety Report 8031559-3 (Version None)
Quarter: 2012Q1

REPORT INFORMATION
  Report Type: 
  Country: None (occurrence: None)
  Receive Date: 20120109
  Receipt Date: 20111229
  Transmission Date: 20120608
  Serious: Yes (Hospitalization)
  Sender: FDA-Public Use
  Company Number: IE-MEDIMMUNE-MEDI-0014346

PATIENT
  Sex: Male
  Weight: 4.22 kg

DRUGS (6)
  1. KAPSOVIT [Concomitant]
  2. SYNAGIS [Suspect]
     Route: 030
     Dates: start: 20111103, end: 20111103
  3. FERROUS SULFATE TAB [Concomitant]
  4. ZOTON CD [Concomitant]
  5. INFACOL-C COLIC [Concomitant]
  6. COLICALM (CD) [Concomitant]

REACTIONS (2)
  - BRONCHITIS [None]
  - VIRAL INFECTION [None]
